FAERS Safety Report 8592665-8 (Version None)
Quarter: 2012Q3

REPORT INFORMATION
  Report Type: 
  Country: None (occurrence: None)
  Receive Date: 20120814
  Receipt Date: 20120806
  Transmission Date: 20120928
  Serious: Yes (Disabling, Other)
  Sender: FDA-Public Use
  Company Number: US-TEVA-353001USA

PATIENT
  Sex: Female

DRUGS (2)
  1. ALENDRONATE SODIUM [Suspect]
  2. FOSAMAX [Suspect]

REACTIONS (3)
  - BONE DISORDER [None]
  - JAW DISORDER [None]
  - FIBULA FRACTURE [None]
